FAERS Safety Report 8478749-3 (Version None)
Quarter: 2012Q2

REPORT INFORMATION
  Report Type: 
  Country: None (occurrence: None)
  Receive Date: 20120629
  Receipt Date: 20120620
  Transmission Date: 20120825
  Serious: Yes (Hospitalization, Other)
  Sender: FDA-Public Use
  Company Number: CA-JNJFOC-20120610110

PATIENT
  Sex: Male

DRUGS (2)
  1. REMICADE [Suspect]
     Indication: FOETAL EXPOSURE DURING PREGNANCY
     Route: 064
     Dates: start: 20111123
  2. REMICADE [Suspect]
     Indication: EXPOSURE DURING BREAST FEEDING
     Route: 064
     Dates: start: 20111123

REACTIONS (2)
  - PREMATURE BABY [None]
  - BREAST FEEDING [None]
